FAERS Safety Report 6899086-4 (Version None)
Quarter: 2010Q3

REPORT INFORMATION
  Report Type: 
  Country: None (occurrence: None)
  Receive Date: 20100802
  Receipt Date: 20071228
  Transmission Date: 20110219
  Serious: No
  Sender: FDA-Public Use
  Company Number: US-PFIZER INC-2007102430

PATIENT
  Sex: Female
  Weight: 56.818 kg

DRUGS (6)
  1. LYRICA [Suspect]
     Indication: PAIN
     Route: 048
     Dates: start: 20071009
  2. LYRICA [Suspect]
     Indication: NEUROPATHY PERIPHERAL
  3. ULTRACET [Concomitant]
  4. PLAVIX [Concomitant]
  5. EVISTA [Concomitant]
  6. QUININE [Concomitant]

REACTIONS (3)
  - DISORIENTATION [None]
  - DIZZINESS [None]
  - FEELING ABNORMAL [None]
